FAERS Safety Report 25265196 (Version 2)
Quarter: 2025Q2

REPORT INFORMATION
  Report Type: Spontaneous
  Country: US (occurrence: US)
  Receive Date: 20250502
  Receipt Date: 20250609
  Transmission Date: 20250717
  Serious: Yes (Hospitalization)
  Sender: AMGEN
  Company Number: US-AMGEN-USASP2025081583

PATIENT
  Age: 79 Year
  Sex: Female

DRUGS (6)
  1. PREDNISONE [Suspect]
     Active Substance: PREDNISONE
     Indication: Product used for unknown indication
     Dosage: 9 MILLIGRAM, QD
     Route: 065
  2. SALINE [Concomitant]
     Active Substance: SODIUM CHLORIDE
  3. HYDROXYCHLOROQUINE [Concomitant]
     Active Substance: HYDROXYCHLOROQUINE
  4. MELOXICAM [Concomitant]
     Active Substance: MELOXICAM
  5. DONEPEZIL [Concomitant]
     Active Substance: DONEPEZIL
  6. TIZANIDINE [Concomitant]
     Active Substance: TIZANIDINE

REACTIONS (2)
  - Necrotising fasciitis [Unknown]
  - Sinusitis [Unknown]
